FAERS Safety Report 4377736-4 (Version None)
Quarter: 2004Q2

REPORT INFORMATION
  Report Type: 
  Country: None (occurrence: None)
  Receive Date: 20040615
  Receipt Date: 20040604
  Transmission Date: 20050107
  Serious: Yes (Hospitalization)
  Sender: FDA-Public Use
  Company Number: PHBS2004EC07405

PATIENT
  Age: 46 Year
  Sex: Female

DRUGS (2)
  1. CATAFLAM [Suspect]
     Indication: BACK PAIN
     Route: 048
  2. VOLTAREN [Suspect]
     Indication: BACK PAIN
     Dosage: 100 MG/2 OR 3 TIMES A WEEK
     Route: 048
     Dates: start: 20030401, end: 20030801

REACTIONS (4)
  - INTERVERTEBRAL DISC PROTRUSION [None]
  - RASH GENERALISED [None]
  - SPEECH DISORDER [None]
  - SWELLING [None]
